FAERS Safety Report 9100680 (Version 1)
Quarter: 2013Q1

REPORT INFORMATION
  Report Type: Spontaneous
  Country: US (occurrence: None)
  Receive Date: 20130220
  Receipt Date: 20130220
  Transmission Date: 20140127
  Serious: No
  Sender: FDA-Public Use
  Company Number: None

PATIENT
  Age: 78 Year
  Sex: Male
  Weight: 65.32 kg

DRUGS (1)
  1. 6-MERCAPTOPURINE [Suspect]
     Indication: CROHN^S DISEASE
     Dosage: 3-4  WEEKS

REACTIONS (2)
  - Red blood cell count decreased [None]
  - Haemoglobin decreased [None]
